FAERS Safety Report 9507877 (Version 1)
Quarter: 2013Q3

REPORT INFORMATION
  Report Type: Spontaneous
  Country: CO (occurrence: CO)
  Receive Date: 20130909
  Receipt Date: 20130909
  Transmission Date: 20140515
  Serious: Yes (Other)
  Sender: FDA-Public Use
  Company Number: CO-PFIZER INC-2013258424

PATIENT
  Age: 75 Year
  Sex: Female

DRUGS (8)
  1. LYRICA [Suspect]
     Indication: OSTEOARTHRITIS
     Dosage: 75 MG, 2X/DAY
     Route: 048
     Dates: start: 2005
  2. LYRICA [Suspect]
     Indication: OSTEOPOROSIS
  3. CALCIUM CARBONATE [Concomitant]
     Indication: BONE DECALCIFICATION
     Dosage: 600 MG, 2X/DAY
     Route: 048
     Dates: start: 2003
  4. IBANDRONIC ACID [Concomitant]
     Indication: OSTEOPOROSIS
     Dosage: 150 MG, MONTHLY
     Route: 048
     Dates: start: 2005
  5. IBANDRONIC ACID [Concomitant]
     Indication: OSTEOARTHRITIS
  6. HYDROCODONE [Concomitant]
     Indication: OSTEOPOROSIS
     Dosage: UNK
     Dates: start: 2005
  7. LOSARTAN [Concomitant]
     Indication: HYPERTENSION
     Dosage: 50 MG, 2X/DAY
     Route: 048
     Dates: start: 2007
  8. LANTUS [Concomitant]
     Indication: BLOOD GLUCOSE INCREASED
     Dosage: 10 IU, 1X/DAY
     Route: 058
     Dates: start: 2012

REACTIONS (6)
  - Off label use [Not Recovered/Not Resolved]
  - Osteoarthritis [Not Recovered/Not Resolved]
  - Osteoporosis [Unknown]
  - Condition aggravated [Not Recovered/Not Resolved]
  - Bedridden [Not Recovered/Not Resolved]
  - Blood cholesterol increased [Not Recovered/Not Resolved]
